FAERS Safety Report 6822164-2 (Version None)
Quarter: 2010Q3

REPORT INFORMATION
  Report Type: 
  Country: None (occurrence: None)
  Receive Date: 20100708
  Receipt Date: 20100629
  Transmission Date: 20110219
  Serious: Yes (Other)
  Sender: FDA-Public Use
  Company Number: US-JNJFOC-20100700201

PATIENT
  Sex: Female
  Weight: 66.23 kg

DRUGS (9)
  1. FENTANYL [Suspect]
     Indication: BACK PAIN
     Route: 062
  2. CELEXA [Concomitant]
     Indication: DEPRESSION
     Route: 048
  3. TOPAMAX [Concomitant]
     Indication: MIGRAINE PROPHYLAXIS
     Route: 048
  4. SAVELLA [Concomitant]
     Indication: FIBROMYALGIA
     Route: 048
  5. PROTONIX [Concomitant]
     Indication: IRRITABLE BOWEL SYNDROME
     Route: 048
  6. LIPITOR [Concomitant]
     Indication: BLOOD CHOLESTEROL
     Route: 048
  7. REMERON [Concomitant]
     Indication: SLEEP DISORDER
     Route: 048
  8. REMERON [Concomitant]
     Indication: DEPRESSION
     Route: 048
  9. NUCYNTA [Concomitant]
     Indication: PAIN
     Route: 048

REACTIONS (7)
  - EATING DISORDER [None]
  - FEELING ABNORMAL [None]
  - HEADACHE [None]
  - HYPERTENSION [None]
  - PHOTOPSIA [None]
  - TREATMENT NONCOMPLIANCE [None]
  - URINARY RETENTION [None]
